FAERS Safety Report 19912340 (Version 1)
Quarter: 2021Q4

REPORT INFORMATION
  Report Type: Spontaneous
  Country: US (occurrence: US)
  Receive Date: 20211002
  Receipt Date: 20211002
  Transmission Date: 20220303
  Serious: Yes (Hospitalization)
  Sender: FDA-Public Use
  Company Number: None

PATIENT
  Age: 30 Year
  Sex: Male
  Weight: 118.2 kg

DRUGS (3)
  1. METHOTREXATE [Suspect]
     Active Substance: METHOTREXATE
     Dates: end: 20210924
  2. ONCASPAR [Suspect]
     Active Substance: PEGASPARGASE
     Dosage: ?          OTHER DOSE:7500 UNIT;
     Dates: end: 20210910
  3. VINCRISTINE SULFATE [Suspect]
     Active Substance: VINCRISTINE SULFATE
     Dates: end: 20210924

REACTIONS (5)
  - Abdominal pain [None]
  - Febrile neutropenia [None]
  - Nausea [None]
  - Diarrhoea [None]
  - Decreased appetite [None]

NARRATIVE: CASE EVENT DATE: 20210928
